FAERS Safety Report 7337850-8 (Version None)
Quarter: 2011Q1

REPORT INFORMATION
  Report Type: 
  Country: None (occurrence: None)
  Receive Date: 20110303
  Receipt Date: 20110303
  Transmission Date: 20110831
  Serious: Yes (Hospitalization)
  Sender: FDA-Public Use
  Company Number: None

PATIENT
  Age: 67 Year
  Sex: Female
  Weight: 48.0813 kg

DRUGS (3)
  1. IRINOTECAN HYDROCHLORIDE [Suspect]
     Indication: PANCREATIC CARCINOMA
     Dosage: 128MGS Q 2 WEEKS IV DRIP
     Route: 041
     Dates: start: 20101202, end: 20110203
  2. OXALIPLATIN [Suspect]
     Indication: PANCREATIC CARCINOMA
     Dosage: 96MGS 1 2 WEEKS IV DRIP
     Route: 041
     Dates: start: 20101202, end: 20110203
  3. CETUXIMAB [Suspect]

REACTIONS (7)
  - DIARRHOEA [None]
  - RENAL FAILURE ACUTE [None]
  - BLOOD PHOSPHORUS INCREASED [None]
  - VOMITING [None]
  - DEHYDRATION [None]
  - HYPOPHAGIA [None]
  - ASTHENIA [None]
